FAERS Safety Report 13533605 (Version 1)
Quarter: 2017Q2

REPORT INFORMATION
  Report Type: Report from Study
  Country: US (occurrence: US)
  Receive Date: 20170510
  Receipt Date: 20170510
  Transmission Date: 20170830
  Serious: Yes (Death)
  Sender: FDA-Public Use
  Company Number: US-PFIZER INC-2017201325

PATIENT
  Age: 46 Year
  Sex: Female

DRUGS (5)
  1. VANCOMYCIN [Concomitant]
     Active Substance: VANCOMYCIN
     Indication: DEVICE RELATED INFECTION
     Dosage: 1 G, UNK
  2. GENTAMICIN. [Concomitant]
     Active Substance: GENTAMICIN
     Indication: DEVICE RELATED INFECTION
     Dosage: 1 MG/KG, UNK
  3. HEPARIN SODIUM. [Suspect]
     Active Substance: HEPARIN SODIUM
     Indication: ANTICOAGULANT THERAPY
     Dosage: UNK
  4. UROKINASE [Concomitant]
     Active Substance: UROKINASE
     Indication: THROMBOLYSIS
     Dosage: 250000 IU, CYCLIC
     Route: 041
  5. WARFARIN [Suspect]
     Active Substance: WARFARIN
     Indication: ANTICOAGULANT THERAPY
     Dosage: UNK

REACTIONS (2)
  - Haemorrhage [Fatal]
  - Atrial thrombosis [Fatal]
